FAERS Safety Report 8287285-9 (Version None)
Quarter: 2012Q2

REPORT INFORMATION
  Report Type: 
  Country: None (occurrence: None)
  Receive Date: 20120416
  Receipt Date: 20120416
  Transmission Date: 20120825
  Serious: No
  Sender: FDA-Public Use
  Company Number: None

PATIENT
  Age: 38 Year
  Sex: Female
  Weight: 117.93 kg

DRUGS (1)
  1. MONISTAT [Suspect]
     Indication: VULVOVAGINAL MYCOTIC INFECTION

REACTIONS (2)
  - PRURITUS [None]
  - BURNING SENSATION [None]
